FAERS Safety Report 5589400-4 (Version None)
Quarter: 2008Q1

REPORT INFORMATION
  Report Type: 
  Country: None (occurrence: None)
  Receive Date: 20080110
  Receipt Date: 20080110
  Transmission Date: 20080703
  Serious: Yes (Other)
  Sender: FDA-Public Use
  Company Number: None

PATIENT
  Age: 31 Year
  Sex: Male
  Weight: 90.7194 kg

DRUGS (2)
  1. VIAGRA [Suspect]
     Dosage: ? 1 TAB
  2. CHOLESTEROL PILL [Concomitant]

REACTIONS (4)
  - CHEST DISCOMFORT [None]
  - FEELING HOT [None]
  - NAUSEA [None]
  - PALPITATIONS [None]
